FAERS Safety Report 5646550-1 (Version None)
Quarter: 2008Q1

REPORT INFORMATION
  Report Type: 
  Country: None (occurrence: None)
  Receive Date: 20080228
  Receipt Date: 20080228
  Transmission Date: 20080703
  Serious: Yes (Hospitalization)
  Sender: FDA-Public Use
  Company Number: None

PATIENT
  Sex: Male

DRUGS (4)
  1. COUMADIN [Suspect]
     Indication: KNEE ARTHROPLASTY
     Dosage: PO QD  (THERAPY DATES:  PRIOR TO ADMISSION)
     Route: 048
  2. PREDNISONE TAB [Concomitant]
  3. ALEVE [Concomitant]
  4. VICODIN [Concomitant]

REACTIONS (2)
  - COAGULOPATHY [None]
  - HAEMATURIA [None]
